FAERS Safety Report 8871694 (Version 1)
Quarter: 2012Q4

REPORT INFORMATION
  Report Type: 
  Country: US (occurrence: US)
  Receive Date: 20121026
  Receipt Date: 20121026
  Transmission Date: 20130627
  Serious: No
  Sender: FDA-Public Use
  Company Number: US-AMGEN-USASP2012048596

PATIENT
  Sex: Male
  Weight: 85.26 kg

DRUGS (5)
  1. ENBREL [Suspect]
     Indication: PRODUCT USED FOR UNKNOWN INDICATION
     Dosage: 50 mg, qwk
  2. METHOTREXATE [Concomitant]
     Dosage: 2.5 mg, UNK
  3. VOLTAREN                           /00372301/ [Concomitant]
     Dosage: 1 %, UNK
  4. FOLIC ACID [Concomitant]
     Dosage: UNK
  5. ASPIRIN CHILDREN [Concomitant]
     Dosage: 81 mg, UNK

REACTIONS (2)
  - Laceration [Unknown]
  - Localised infection [Unknown]
